FAERS Safety Report 19006777 (Version 1)
Quarter: 2021Q1

REPORT INFORMATION
  Report Type: Spontaneous
  Country: US (occurrence: US)
  Receive Date: 20210312
  Receipt Date: 20210312
  Transmission Date: 20210420
  Serious: No
  Sender: FDA-Public Use
  Company Number: None

PATIENT
  Age: 60 Year
  Sex: Female
  Weight: 83.01 kg

DRUGS (3)
  1. TYMLOS [Suspect]
     Active Substance: ABALOPARATIDE
     Indication: SENILE OSTEOPOROSIS
  2. TYMLOS [Suspect]
     Active Substance: ABALOPARATIDE
     Indication: BONE DENSITY ABNORMAL
     Route: 058
     Dates: start: 202101
  3. TYMLOS [Suspect]
     Active Substance: ABALOPARATIDE
     Indication: SENILE OSTEOPOROSIS
     Route: 058
     Dates: start: 202101

REACTIONS (1)
  - Cardiac disorder [None]
